FAERS Safety Report 15268936 (Version 2)
Quarter: 2019Q2

REPORT INFORMATION
  Report Type: Report from Study
  Country: US (occurrence: US)
  Receive Date: 20180813
  Receipt Date: 20190625
  Transmission Date: 20190711
  Serious: Yes (Other)
  Sender: FDA-Public Use
  Company Number: US-BRISTOL-MYERS SQUIBB COMPANY-BMS-2018-074159

PATIENT
  Age: 57 Year
  Sex: Female

DRUGS (3)
  1. ABATACEPT [Suspect]
     Active Substance: ABATACEPT
     Indication: RHEUMATOID ARTHRITIS
     Dosage: 125 MG, QWK
     Route: 058
     Dates: start: 201212
  2. METHOTREXATE. [Concomitant]
     Active Substance: METHOTREXATE
     Indication: PRODUCT USED FOR UNKNOWN INDICATION
     Route: 065
  3. FOLIC ACID. [Concomitant]
     Active Substance: FOLIC ACID
     Indication: PRODUCT USED FOR UNKNOWN INDICATION
     Route: 065

REACTIONS (12)
  - Gastritis erosive [Unknown]
  - Seborrhoeic keratosis [Unknown]
  - Carpal tunnel syndrome [Unknown]
  - Pulmonary mass [Unknown]
  - Splenic cyst [Unknown]
  - Fracture [Unknown]
  - Uterine polyp [Unknown]
  - Uterine leiomyoma [Unknown]
  - Sinusitis [Unknown]
  - Upper respiratory tract infection [Unknown]
  - Eye haemorrhage [Unknown]
  - Fibrous histiocytoma [Unknown]

NARRATIVE: CASE EVENT DATE: 201212
